FAERS Safety Report 20474209 (Version 1)
Quarter: 2022Q1

REPORT INFORMATION
  Report Type: Spontaneous
  Country: US (occurrence: US)
  Receive Date: 20220215
  Receipt Date: 20220215
  Transmission Date: 20220423
  Serious: Yes (Other)
  Sender: FDA-Public Use
  Company Number: US-GALDERMA-US2022001337

PATIENT
  Age: 53 Year
  Sex: Female

DRUGS (1)
  1. TRI-LUMA [Suspect]
     Active Substance: FLUOCINOLONE ACETONIDE\HYDROQUINONE\TRETINOIN
     Indication: Chloasma
     Dosage: 1 DOSAGE FORM, QD
     Route: 061
     Dates: start: 20211115, end: 20220130

REACTIONS (1)
  - Ochronosis [Not Recovered/Not Resolved]

NARRATIVE: CASE EVENT DATE: 20220130
